FAERS Safety Report 5554268-9 (Version None)
Quarter: 2007Q4

REPORT INFORMATION
  Report Type: 
  Country: None (occurrence: None)
  Receive Date: 20071213
  Receipt Date: 20071212
  Transmission Date: 20080405
  Serious: Yes (Hospitalization)
  Sender: FDA-Public Use
  Company Number: A0698596A

PATIENT
  Sex: Female

DRUGS (3)
  1. IMITREX [Suspect]
     Indication: MIGRAINE
     Dosage: 50MG VARIABLE DOSE
     Route: 048
     Dates: start: 19970101, end: 20040101
  2. IMITREX [Suspect]
     Route: 045
  3. EVISTA [Concomitant]

REACTIONS (3)
  - DRUG INEFFECTIVE [None]
  - PRESYNCOPE [None]
  - TENSION HEADACHE [None]
